FAERS Safety Report 21530835 (Version 1)
Quarter: 2022Q4

REPORT INFORMATION
  Report Type: Spontaneous
  Country: US (occurrence: None)
  Receive Date: 20221030
  Receipt Date: 20221030
  Transmission Date: 20230113
  Serious: Yes (Other)
  Sender: FDA-Public Use
  Company Number: None

PATIENT
  Age: 66 Year
  Sex: Female
  Weight: 65.25 kg

DRUGS (14)
  1. AIMOVIG [Suspect]
     Active Substance: ERENUMAB-AOOE
     Indication: Migraine
     Dosage: OTHER QUANTITY : 1 INJECTION;?OTHER FREQUENCY : ONCE MONTHLY;?
     Route: 058
  2. Famotadine [Concomitant]
  3. PANTOPRAZOLE [Concomitant]
     Active Substance: PANTOPRAZOLE
  4. AMBIEN [Concomitant]
     Active Substance: ZOLPIDEM TARTRATE
  5. LINZESS [Concomitant]
     Active Substance: LINACLOTIDE
  6. DOCUSATE [Concomitant]
     Active Substance: DOCUSATE
  7. SINGULAIR [Concomitant]
     Active Substance: MONTELUKAST SODIUM
  8. ACYCLOVIR [Concomitant]
     Active Substance: ACYCLOVIR
  9. AMITRIPTYLINE [Concomitant]
     Active Substance: AMITRIPTYLINE
  10. ALBUTEROL [Concomitant]
     Active Substance: ALBUTEROL
  11. FLOVENT [Concomitant]
     Active Substance: FLUTICASONE PROPIONATE
  12. Flonase [Concomitant]
  13. UBRELVY [Concomitant]
     Active Substance: UBROGEPANT
  14. Naproxen occasionally [Concomitant]

REACTIONS (2)
  - Hypertension [None]
  - Palpitations [None]

NARRATIVE: CASE EVENT DATE: 20220918
